FAERS Safety Report 20700254 (Version 3)
Quarter: 2022Q3

REPORT INFORMATION
  Report Type: Spontaneous
  Country: CA (occurrence: CA)
  Receive Date: 20220412
  Receipt Date: 20220901
  Transmission Date: 20221027
  Serious: Yes (Other)
  Sender: FDA-Public Use
  Company Number: CA-GLAXOSMITHKLINE-CA2021AMR267355

PATIENT

DRUGS (10)
  1. ACITRETIN [Suspect]
     Active Substance: ACITRETIN
     Indication: Product used for unknown indication
     Dosage: UNK
     Route: 048
  2. ALITRETINOIN [Suspect]
     Active Substance: ALITRETINOIN
     Indication: Product used for unknown indication
     Dosage: UNK
     Route: 065
  3. HUMIRA [Suspect]
     Active Substance: ADALIMUMAB
     Indication: Psoriasis
     Dosage: UNK
     Route: 058
  4. HUMIRA [Suspect]
     Active Substance: ADALIMUMAB
     Dosage: UNK
     Route: 048
  5. RISANKIZUMAB [Suspect]
     Active Substance: RISANKIZUMAB
     Indication: Product used for unknown indication
     Dosage: UNK
     Route: 058
  6. SORIATANE [Suspect]
     Active Substance: ACITRETIN
     Indication: Product used for unknown indication
     Dosage: UNK
     Route: 048
  7. SKYRIZI [Suspect]
     Active Substance: RISANKIZUMAB-RZAA
     Indication: Product used for unknown indication
     Dosage: UNK
     Route: 058
  8. CLOBETASOL [Concomitant]
     Active Substance: CLOBETASOL
     Indication: Product used for unknown indication
     Dosage: UNK
  9. BRODALUMAB [Concomitant]
     Active Substance: BRODALUMAB
     Indication: Product used for unknown indication
     Dosage: UNK
     Route: 065
  10. SALICYLIC ACID [Concomitant]
     Active Substance: SALICYLIC ACID
     Indication: Product used for unknown indication
     Dosage: UNK

REACTIONS (16)
  - Bladder cancer [Not Recovered/Not Resolved]
  - Acrokeratosis paraneoplastica [Not Recovered/Not Resolved]
  - Epidermal necrosis [Not Recovered/Not Resolved]
  - Psoriasis [Not Recovered/Not Resolved]
  - Limb discomfort [Unknown]
  - Hyperkeratosis [Not Recovered/Not Resolved]
  - Parakeratosis [Not Recovered/Not Resolved]
  - Acanthosis [Not Recovered/Not Resolved]
  - Superficial inflammatory dermatosis [Not Recovered/Not Resolved]
  - Lichenoid keratosis [Not Recovered/Not Resolved]
  - Lymphocytic infiltration [Not Recovered/Not Resolved]
  - Dermatitis psoriasiform [Not Recovered/Not Resolved]
  - Eczema [Not Recovered/Not Resolved]
  - Drug intolerance [Not Recovered/Not Resolved]
  - Drug ineffective [Not Recovered/Not Resolved]
  - Unevaluable event [Not Recovered/Not Resolved]
